FAERS Safety Report 19265238 (Version 1)
Quarter: 2021Q2

REPORT INFORMATION
  Report Type: Spontaneous
  Country: IT (occurrence: IT)
  Receive Date: 20210517
  Receipt Date: 20210517
  Transmission Date: 20210717
  Serious: Yes (Other)
  Sender: FDA-Public Use
  Company Number: IT-009507513-2105ITA002058

PATIENT
  Sex: Female

DRUGS (1)
  1. PEMBROLIZUMAB. [Suspect]
     Active Substance: PEMBROLIZUMAB
     Indication: NON-SMALL CELL LUNG CANCER
     Dosage: 1ST INFUSION
     Dates: start: 20210507

REACTIONS (1)
  - Ill-defined disorder [Unknown]

NARRATIVE: CASE EVENT DATE: 20210507
